FAERS Safety Report 18062270 (Version 1)
Quarter: 2020Q3

REPORT INFORMATION
  Report Type: Report from Study
  Country: IT (occurrence: IT)
  Receive Date: 20200724
  Receipt Date: 20200724
  Transmission Date: 20201103
  Serious: Yes (Life-Threatening)
  Sender: FDA-Public Use
  Company Number: IT-TEVA-2020-IT-1803844

PATIENT
  Age: 46 Year
  Sex: Female
  Weight: 51 kg

DRUGS (1)
  1. PACLITAXEL TEVA ITALIA [Suspect]
     Active Substance: PACLITAXEL
     Indication: ADJUVANT THERAPY
     Dosage: 250 MG
     Route: 042
     Dates: start: 20200706, end: 20200706

REACTIONS (2)
  - Suffocation feeling [Recovered/Resolved]
  - Spinal pain [Recovered/Resolved]

NARRATIVE: CASE EVENT DATE: 20200706
